FAERS Safety Report 7475699-6 (Version None)
Quarter: 2011Q2

REPORT INFORMATION
  Report Type: 
  Country: None (occurrence: None)
  Receive Date: 20110512
  Receipt Date: 20110509
  Transmission Date: 20111010
  Serious: Yes (Hospitalization, Other)
  Sender: FDA-Public Use
  Company Number: US-ELI_LILLY_AND_COMPANY-US200912005021

PATIENT
  Sex: Female
  Weight: 79.819 kg

DRUGS (6)
  1. GLUCOTROL [Concomitant]
     Dates: end: 20090101
  2. ACEON [Concomitant]
     Dosage: 4 MG, DAILY (1/D)
     Dates: start: 20061006
  3. BYETTA [Suspect]
     Indication: DIABETES MELLITUS
     Dosage: UNK, UNKNOWN
     Route: 065
     Dates: start: 20060921, end: 20061002
  4. NEXIUM [Concomitant]
     Dates: end: 20061001
  5. GLUCOTROL [Concomitant]
     Indication: DIABETES MELLITUS
     Dosage: UNK, UNK
     Dates: start: 20060101, end: 20061001
  6. MULTI-VITAMIN [Concomitant]

REACTIONS (3)
  - RENAL FAILURE [None]
  - PANCREATITIS [None]
  - PANCREATITIS ACUTE [None]
